FAERS Safety Report 7412022-7 (Version None)
Quarter: 2011Q2

REPORT INFORMATION
  Report Type: 
  Country: None (occurrence: None)
  Receive Date: 20110413
  Receipt Date: 20110404
  Transmission Date: 20111010
  Serious: Yes (Other)
  Sender: FDA-Public Use
  Company Number: US-ASTRAZENECA-2011SE18350

PATIENT
  Age: 71 Year
  Sex: Female
  Weight: 70.3 kg

DRUGS (5)
  1. CRESTOR [Suspect]
     Indication: HYPERCHOLESTEROLAEMIA
     Route: 048
  2. VITAMIN D [Concomitant]
  3. BYSTOLIC [Concomitant]
  4. DIOVAN [Concomitant]
  5. CALCIUM [Concomitant]

REACTIONS (4)
  - BODY HEIGHT DECREASED [None]
  - OSTEOPOROSIS [None]
  - VENTRICULAR EXTRASYSTOLES [None]
  - BREAST CANCER [None]
